FAERS Safety Report 4844586-1 (Version None)
Quarter: 2005Q4

REPORT INFORMATION
  Report Type: 
  Country: None (occurrence: None)
  Receive Date: 20051125
  Receipt Date: 20051115
  Transmission Date: 20060501
  Serious: Yes (Hospitalization, Other)
  Sender: FDA-Public Use
  Company Number: 2005156393

PATIENT
  Age: 54 Year
  Sex: Female
  Weight: 74.8435 kg

DRUGS (4)
  1. NEURONTIN [Suspect]
     Indication: NEUROPATHY
     Dosage: 900 MG (300 MG, 3 IN 1 D),
  2. VALIUM [Concomitant]
  3. TOPROL-XL [Concomitant]
  4. ACETAMINOPHEN [Concomitant]

REACTIONS (5)
  - CELLULITIS STAPHYLOCOCCAL [None]
  - CONDITION AGGRAVATED [None]
  - ECONOMIC PROBLEM [None]
  - NEUROPATHY [None]
  - TREATMENT NONCOMPLIANCE [None]
